FAERS Safety Report 4603983-X (Version None)
Quarter: 2005Q1

REPORT INFORMATION
  Report Type: 
  Country: None (occurrence: None)
  Receive Date: 20050308
  Receipt Date: 20050205
  Transmission Date: 20050727
  Serious: Yes (Other)
  Sender: FDA-Public Use
  Company Number: ENTC2005-0043

PATIENT
  Sex: Male

DRUGS (2)
  1. STALEVO 100 [Suspect]
     Indication: PARKINSON'S DISEASE
     Dates: start: 20050101
  2. CELANCE [Concomitant]

REACTIONS (5)
  - DECREASED APPETITE [None]
  - LEUKOPENIA [None]
  - MUSCULOSKELETAL STIFFNESS [None]
  - NEUTROPENIA [None]
  - TREMOR [None]
